FAERS Safety Report 7302461-7 (Version None)
Quarter: 2011Q1

REPORT INFORMATION
  Report Type: 
  Country: None (occurrence: None)
  Receive Date: 20110218
  Receipt Date: 20110210
  Transmission Date: 20110831
  Serious: No
  Sender: FDA-Public Use
  Company Number: B0700152A

PATIENT
  Sex: Female

DRUGS (1)
  1. RELENZA [Suspect]
     Route: 031

REACTIONS (2)
  - ABNORMAL SENSATION IN EYE [None]
  - INCORRECT ROUTE OF DRUG ADMINISTRATION [None]
